FAERS Safety Report 20580398 (Version 4)
Quarter: 2022Q3

REPORT INFORMATION
  Report Type: Report from Study
  Country: BR (occurrence: BR)
  Receive Date: 20220311
  Receipt Date: 20220922
  Transmission Date: 20221026
  Serious: Yes (Other)
  Sender: FDA-Public Use
  Company Number: BR-JNJFOC-20220311483

PATIENT
  Age: 44 Year
  Sex: Female

DRUGS (3)
  1. SIMPONI [Suspect]
     Active Substance: GOLIMUMAB
     Indication: Ankylosing spondylitis
     Dosage: LAST APPLICATION WAS ON 02-MAR-2022
     Route: 058
     Dates: start: 20211101, end: 20220729
  2. SIMPONI [Suspect]
     Active Substance: GOLIMUMAB
  3. HYDROCHLOROTHIAZIDE [Concomitant]
     Active Substance: HYDROCHLOROTHIAZIDE
     Indication: Blood pressure measurement
     Route: 065

REACTIONS (4)
  - Ankylosing spondylitis [Not Recovered/Not Resolved]
  - Latent tuberculosis [Unknown]
  - COVID-19 [Unknown]
  - Drug ineffective [Unknown]

NARRATIVE: CASE EVENT DATE: 20220113
